FAERS Safety Report 19771683 (Version 1)
Quarter: 2021Q3

REPORT INFORMATION
  Report Type: Spontaneous
  Country: CN (occurrence: CN)
  Receive Date: 20210831
  Receipt Date: 20210831
  Transmission Date: 20211014
  Serious: Yes (Life-Threatening, Hospitalization)
  Sender: FDA-Public Use
  Company Number: CN-LUPIN PHARMACEUTICALS INC.-2021-16005

PATIENT
  Age: 69 Year
  Sex: Male

DRUGS (10)
  1. CARBOPLATIN. [Concomitant]
     Active Substance: CARBOPLATIN
     Indication: LUNG ADENOCARCINOMA STAGE IV
     Dosage: UNK
     Route: 065
  2. PIRFENIDONE. [Concomitant]
     Active Substance: PIRFENIDONE
     Indication: PNEUMONITIS
     Dosage: UNK
     Route: 065
  3. TACROLIMUS. [Concomitant]
     Active Substance: TACROLIMUS
     Indication: PNEUMONITIS
     Dosage: UNK
     Route: 065
  4. IMMUNOGLOBULIN (IMMUNOGLOBULIN HUMAN NORMAL) [Suspect]
     Active Substance: HUMAN IMMUNOGLOBULIN G
     Indication: PNEUMONITIS
     Dosage: UNK
     Route: 065
  5. TOCILIZUMAB. [Concomitant]
     Active Substance: TOCILIZUMAB
     Indication: PNEUMONITIS
     Dosage: 8 MILLIGRAM/KILOGRAM
     Route: 042
  6. METHYLPREDNISOLONE. [Suspect]
     Active Substance: METHYLPREDNISOLONE
     Indication: PNEUMONITIS
     Dosage: 100 MILLIGRAM, BID, INJECTION
     Route: 042
  7. CEFOPERAZONE [Suspect]
     Active Substance: CEFOPERAZONE
     Indication: PNEUMONITIS
     Dosage: UNK
     Route: 065
  8. PEMETREXED. [Concomitant]
     Active Substance: PEMETREXED
     Indication: LUNG ADENOCARCINOMA STAGE IV
     Dosage: UNK
     Route: 065
  9. PEMBROLIZUMAB. [Concomitant]
     Active Substance: PEMBROLIZUMAB
     Indication: LUNG ADENOCARCINOMA STAGE IV
     Dosage: UNK
     Route: 065
  10. PREDNISONE. [Concomitant]
     Active Substance: PREDNISONE
     Indication: PNEUMONITIS
     Dosage: UNK
     Route: 048

REACTIONS (3)
  - Condition aggravated [Recovering/Resolving]
  - Drug resistance [Unknown]
  - Pneumonitis [Recovering/Resolving]
